FAERS Safety Report 23492791 (Version 1)
Quarter: 2024Q1

REPORT INFORMATION
  Report Type: Spontaneous
  Country: BG (occurrence: BG)
  Receive Date: 20240207
  Receipt Date: 20240207
  Transmission Date: 20240410
  Serious: Yes (Other)
  Sender: FDA-Public Use
  Company Number: BG-NOVITIUMPHARMA-2024BGNVP00117

PATIENT
  Sex: Female

DRUGS (3)
  1. BISOPROLOL FUMARATE [Suspect]
     Active Substance: BISOPROLOL FUMARATE
     Indication: Hypertension
  2. NEBIVOLOL [Concomitant]
     Active Substance: NEBIVOLOL
     Indication: Hypertension
  3. BISOPROLOL\PERINDOPRIL [Concomitant]
     Active Substance: BISOPROLOL\PERINDOPRIL
     Indication: Hypertension
     Dosage: 5MG/10MG

REACTIONS (3)
  - Nodular melanoma [Unknown]
  - Exposure during pregnancy [Unknown]
  - Product contamination [Unknown]
